FAERS Safety Report 7305963-2 (Version None)
Quarter: 2011Q1

REPORT INFORMATION
  Report Type: 
  Country: None (occurrence: None)
  Receive Date: 20110209
  Receipt Date: 20110127
  Transmission Date: 20110831
  Serious: Yes (Hospitalization, Other)
  Sender: FDA-Public Use
  Company Number: 2011AP000055

PATIENT
  Age: 85 Year
  Sex: Male

DRUGS (12)
  1. COLACE [Concomitant]
  2. DILT-XR0 [Suspect]
     Indication: SUPRAVENTRICULAR TACHYCARDIA
  3. GEMCITABINE [Concomitant]
  4. FENTANYL [Suspect]
     Indication: MUSCULOSKELETAL CHEST PAIN
     Dosage: 75 UG'QH;IV, 25 UG/QH; IV
     Route: 042
  5. FENTANYL [Suspect]
     Indication: BACK PAIN
     Dosage: 75 UG'QH;IV, 25 UG/QH; IV
     Route: 042
  6. FENTANYL [Concomitant]
  7. OXYCODONE [Concomitant]
  8. PREVACID [Concomitant]
  9. SENNA [Concomitant]
  10. VINORELBINE [Concomitant]
  11. RANITIDINE [Concomitant]
  12. FLOMAX [Concomitant]

REACTIONS (18)
  - PNEUMONIA [None]
  - SOMNOLENCE [None]
  - AGITATION [None]
  - CONFUSIONAL STATE [None]
  - DEHYDRATION [None]
  - PERSECUTORY DELUSION [None]
  - HALLUCINATION [None]
  - CLOSTRIDIUM DIFFICILE COLITIS [None]
  - DRUG INTERACTION [None]
  - SUPRAVENTRICULAR TACHYCARDIA [None]
  - MIOSIS [None]
  - DELIRIUM [None]
  - URINARY TRACT INFECTION [None]
  - BEDRIDDEN [None]
  - AGGRESSION [None]
  - ELECTROCARDIOGRAM QT PROLONGED [None]
  - HAEMOGLOBIN DECREASED [None]
  - CONDITION AGGRAVATED [None]
